FAERS Safety Report 5069810-4 (Version None)
Quarter: 2006Q3

REPORT INFORMATION
  Report Type: 
  Country: None (occurrence: None)
  Receive Date: 20060731
  Receipt Date: 20060713
  Transmission Date: 20061208
  Serious: Yes (Life-Threatening, Other)
  Sender: FDA-Public Use
  Company Number: GB-2006-019193

PATIENT
  Age: 16 Year
  Sex: Female

DRUGS (5)
  1. FLUDARABINE [Suspect]
     Indication: APLASTIC ANAEMIA
     Dosage: INTRAVENOUS
     Route: 042
     Dates: start: 20031001
  2. CAMPATH [Concomitant]
  3. CYCLOPHOSPHAMIDE [Concomitant]
  4. CYCLOSPORINE [Concomitant]
  5. CORTICOSTEROIDS [Concomitant]

REACTIONS (9)
  - ACUTE GRAFT VERSUS HOST DISEASE IN SKIN [None]
  - ANAEMIA HAEMOLYTIC AUTOIMMUNE [None]
  - APLASTIC ANAEMIA [None]
  - BONE MARROW DISORDER [None]
  - DISEASE RECURRENCE [None]
  - GRAFT VERSUS HOST DISEASE [None]
  - PANCYTOPENIA [None]
  - RENAL FAILURE [None]
  - VIRAL INFECTION [None]
